FAERS Safety Report 8765312 (Version 2)
Quarter: 2012Q4

REPORT INFORMATION
  Report Type: Report from Study
  Country: JP (occurrence: JP)
  Receive Date: 20120831
  Receipt Date: 20121031
  Transmission Date: 20130627
  Serious: Yes (Other)
  Sender: FDA-Public Use
  Company Number: JP-CELGENEUS-087-21660-12082958

PATIENT
  Age: 64 Year
  Sex: Female
  Weight: 55 kg

DRUGS (3)
  1. ABRAXANE [Suspect]
     Indication: BREAST CANCER
     Dosage: 180-229 mg
     Route: 065
     Dates: start: 20110830, end: 20120724
  2. ABRAXANE [Suspect]
     Dosage: 180 Milligram
     Route: 065
     Dates: start: 20120911
  3. RINDERON [Concomitant]
     Indication: SKIN ERUPTION
     Route: 048
     Dates: start: 20120403

REACTIONS (2)
  - Macular oedema [Not Recovered/Not Resolved]
  - Lacrimation increased [Not Recovered/Not Resolved]
